FAERS Safety Report 4342069-9 (Version None)
Quarter: 2004Q2

REPORT INFORMATION
  Report Type: 
  Country: None (occurrence: None)
  Receive Date: 20040420
  Receipt Date: 20040413
  Transmission Date: 20050107
  Serious: Yes (Hospitalization, Disabling)
  Sender: FDA-Public Use
  Company Number: US-MERCK-0404USA01314

PATIENT
  Sex: Female

DRUGS (9)
  1. ALBUTEROL [Concomitant]
     Route: 065
  2. ZETIA [Suspect]
     Indication: DYSLIPIDAEMIA
     Route: 048
     Dates: start: 20030620
  3. FLOVENT [Concomitant]
     Route: 065
  4. SYNTHROID [Concomitant]
     Route: 065
  5. SINGULAIR [Concomitant]
     Route: 048
  6. ACCUPRIL [Concomitant]
     Route: 065
  7. AVANDIA [Concomitant]
     Route: 065
  8. SPIRONOLACTONE [Concomitant]
     Route: 065
  9. TRAZODONE HYDROCHLORIDE [Concomitant]
     Route: 065

REACTIONS (1)
  - PANCREATITIS [None]
